FAERS Safety Report 14503857 (Version 1)
Quarter: 2018Q1

REPORT INFORMATION
  Report Type: Spontaneous
  Country: US (occurrence: US)
  Receive Date: 20180208
  Receipt Date: 20180208
  Transmission Date: 20180509
  Serious: No
  Sender: FDA-Public Use
  Company Number: US-JNJFOC-20180128024

PATIENT
  Sex: Female

DRUGS (15)
  1. LORAZEPAM. [Concomitant]
     Active Substance: LORAZEPAM
  2. ONDANSETRON [Concomitant]
     Active Substance: ONDANSETRON
  3. DUREZOL [Concomitant]
     Active Substance: DIFLUPREDNATE
  4. PRAVASTATIN. [Concomitant]
     Active Substance: PRAVASTATIN
  5. METOPROLOL TARTRATE. [Concomitant]
     Active Substance: METOPROLOL TARTRATE
  6. IMITREX [Concomitant]
     Active Substance: SUMATRIPTAN SUCCINATE
  7. IPRATROPIUM [Concomitant]
     Active Substance: IPRATROPIUM
  8. DICLOFENAC [Concomitant]
     Active Substance: DICLOFENAC
  9. ERYTHROMYCIN. [Concomitant]
     Active Substance: ERYTHROMYCIN
  10. MULTIVITAMINS [Concomitant]
     Active Substance: VITAMINS
  11. CALCIUM CARBONATE. [Concomitant]
     Active Substance: CALCIUM CARBONATE
  12. IMBRUVICA [Suspect]
     Active Substance: IBRUTINIB
     Indication: MANTLE CELL LYMPHOMA
     Route: 048
  13. GABAPENTIN. [Concomitant]
     Active Substance: GABAPENTIN
  14. RANITIDINE. [Concomitant]
     Active Substance: RANITIDINE
  15. RAMIPRIL. [Concomitant]
     Active Substance: RAMIPRIL

REACTIONS (1)
  - Nasopharyngitis [Unknown]
